FAERS Safety Report 6771787-8 (Version None)
Quarter: 2010Q2

REPORT INFORMATION
  Report Type: 
  Country: None (occurrence: None)
  Receive Date: 20100616
  Receipt Date: 20100223
  Transmission Date: 20101027
  Serious: No
  Sender: FDA-Public Use
  Company Number: US-ASTRAZENECA-2010SE08018

PATIENT
  Sex: Male
  Weight: 111.1 kg

DRUGS (8)
  1. ATACAND [Suspect]
     Indication: BLOOD PRESSURE
     Route: 048
  2. PLAVIX [Concomitant]
     Indication: ARTERIAL STENT INSERTION
  3. ASPIRIN [Concomitant]
     Indication: CARDIAC DISORDER
  4. METFORMIN HCL [Concomitant]
     Indication: DIABETES MELLITUS
  5. SIMVASTATIN [Concomitant]
     Indication: LIPIDS
  6. VERAPAMIL [Concomitant]
     Indication: BLOOD PRESSURE
  7. ATENOLOL [Concomitant]
     Indication: ARTERIAL STENT INSERTION
  8. L-ARGININE [Concomitant]
     Indication: IMMUNE ENHANCEMENT THERAPY

REACTIONS (1)
  - INSOMNIA [None]
